FAERS Safety Report 5627097-5 (Version None)
Quarter: 2008Q1

REPORT INFORMATION
  Report Type: 
  Country: None (occurrence: None)
  Receive Date: 20080130
  Receipt Date: 20080103
  Transmission Date: 20080703
  Serious: Yes (Other)
  Sender: FDA-Public Use
  Company Number: 44005

PATIENT
  Age: 76 Year
  Sex: Female
  Weight: 86 kg

DRUGS (1)
  1. MESNA [Suspect]
     Indication: HAEMORRHAGE
     Dosage: 2000MG/1000ML NS OVER 12 HO
     Dates: start: 20080102, end: 20080104

REACTIONS (1)
  - EXTRAVASATION [None]
